FAERS Safety Report 22211088 (Version 1)
Quarter: 2023Q2

REPORT INFORMATION
  Report Type: Spontaneous
  Country: US (occurrence: US)
  Receive Date: 20230414
  Receipt Date: 20230414
  Transmission Date: 20230721
  Serious: No
  Sender: FDA-Public Use
  Company Number: US-SA-SAC20230412000702

PATIENT
  Sex: Female
  Weight: 84.23 kg

DRUGS (13)
  1. KEVZARA [Suspect]
     Active Substance: SARILUMAB
     Indication: Rheumatoid arthritis
     Dosage: 200 MG, QOW
     Route: 058
     Dates: start: 20210611
  2. OLUMIANT [Concomitant]
     Active Substance: BARICITINIB
  3. PREDNISONE [Concomitant]
     Active Substance: PREDNISONE
  4. MELOXICAM [Concomitant]
     Active Substance: MELOXICAM
  5. CALCIUM WITH VITAMIN D 3 [Concomitant]
  6. TRAMADOL HCL [Concomitant]
     Active Substance: TRAMADOL HYDROCHLORIDE
  7. GABAPENTIN [Concomitant]
     Active Substance: GABAPENTIN
  8. SINGULAIR [Concomitant]
     Active Substance: MONTELUKAST SODIUM
  9. IBUPROFEN [Concomitant]
     Active Substance: IBUPROFEN
  10. PROAIR HFA [Concomitant]
     Active Substance: ALBUTEROL SULFATE
  11. ZYRTEC [Concomitant]
     Active Substance: CETIRIZINE HYDROCHLORIDE
  12. DICLOFENAC [Concomitant]
     Active Substance: DICLOFENAC
  13. OMEPRAZOLE [Concomitant]
     Active Substance: OMEPRAZOLE

REACTIONS (1)
  - Drug hypersensitivity [Unknown]
